FAERS Safety Report 15419701 (Version 1)
Quarter: 2018Q3

REPORT INFORMATION
  Report Type: Report from Study
  Country: FR (occurrence: FR)
  Receive Date: 20180924
  Receipt Date: 20180924
  Transmission Date: 20181010
  Serious: Yes (Death, Hospitalization, Other)
  Sender: FDA-Public Use
  Company Number: FR-PFIZER INC-2015232485

PATIENT
  Age: 19 Year
  Sex: Male

DRUGS (10)
  1. TERCIAN [Concomitant]
     Active Substance: CYAMEMAZINE
     Dosage: 5 GTT, 3X/DAY
  2. TOPALGIC [Concomitant]
     Dosage: 50 MG, AS NEEDED
  3. TIENAM [Concomitant]
     Active Substance: CILASTATIN SODIUM\IMIPENEM
     Dosage: 1 G, THREE TIMES DAILY (EVERY 8 HOURS)
     Route: 042
  4. INOTUZUMAB OZOGAMICIN [Suspect]
     Active Substance: INOTUZUMAB OZOGAMICIN
     Indication: ACUTE LYMPHOCYTIC LEUKAEMIA
     Dosage: 0.8 MG/M2, WEEKLY
     Route: 042
     Dates: start: 20150703, end: 20150703
  5. GLUCOSE W/POTASSIUM CHLORIDE/SODIUM CHLORIDE [Concomitant]
     Dosage: 1500 ML, DAILY (PER 24 HOURS)
  6. SPASFON [Concomitant]
     Dosage: 1 DF, 1X/DAY IN MORNING
     Route: 042
  7. FLUCONAZOLE. [Concomitant]
     Active Substance: FLUCONAZOLE
     Dosage: 400 MG, ONCE DAILY (AT MIDDAY)
  8. PRIMPERAN [Concomitant]
     Active Substance: METOCLOPRAMIDE HYDROCHLORIDE
     Dosage: 10 MG, THREE TIMES DAILY (EVERY 8 HOURS)
     Route: 042
  9. ZOPHREN [Concomitant]
     Active Substance: ONDANSETRON
     Dosage: 4 MG FOUR TIMES DAILY (EVERY 6 HOURS)
     Route: 042
  10. VALACICLOVIR [Concomitant]
     Active Substance: VALACYCLOVIR HYDROCHLORIDE
     Dosage: 500 MG, 2X/DAY 1?0?1 (IN MORNINGS AND EVENINGS)
     Route: 048

REACTIONS (6)
  - Cholestasis [Fatal]
  - Bacterial sepsis [Unknown]
  - Lung infection [Unknown]
  - Hepatocellular injury [Fatal]
  - Acute lymphocytic leukaemia [Fatal]
  - Disease progression [Fatal]

NARRATIVE: CASE EVENT DATE: 201507
